FAERS Safety Report 7425797-8 (Version None)
Quarter: 2011Q2

REPORT INFORMATION
  Report Type: 
  Country: None (occurrence: None)
  Receive Date: 20110420
  Receipt Date: 20110407
  Transmission Date: 20111010
  Serious: Yes (Other)
  Sender: FDA-Public Use
  Company Number: CA-JNJFOC-20110404478

PATIENT
  Sex: Female
  Weight: 81.3 kg

DRUGS (3)
  1. FERROUS SULFATE TAB [Concomitant]
     Route: 065
  2. REMICADE [Suspect]
     Indication: CROHN'S DISEASE
     Route: 042
  3. ASACOL [Concomitant]
     Route: 065

REACTIONS (1)
  - NEPHROLITHIASIS [None]
